FAERS Safety Report 23452035 (Version 1)
Quarter: 2024Q1

REPORT INFORMATION
  Report Type: Spontaneous
  Country: US (occurrence: US)
  Receive Date: 20240129
  Receipt Date: 20240129
  Transmission Date: 20240410
  Serious: No
  Sender: FDA-Public Use
  Company Number: US-PFIZER INC-PV202400011229

PATIENT
  Age: 59 Year
  Sex: Female

DRUGS (2)
  1. NURTEC ODT [Suspect]
     Active Substance: RIMEGEPANT SULFATE
     Indication: Migraine
     Dosage: 1 TABLET EVERY OTHER DAY
     Route: 048
  2. NURTEC ODT [Suspect]
     Active Substance: RIMEGEPANT SULFATE
     Dosage: MAY TAKE 1 TABLET ORALLY ONCE PER DAY AS NEEDED ; MAX 1 TABLET PER 24 HOURS
     Route: 048

REACTIONS (1)
  - Drug ineffective [Unknown]
